FAERS Safety Report 4864884-5 (Version None)
Quarter: 2005Q4

REPORT INFORMATION
  Report Type: 
  Country: None (occurrence: None)
  Receive Date: 20051201
  Receipt Date: 20050821
  Transmission Date: 20060501
  Serious: No
  Sender: FDA-Public Use
  Company Number: 2005PV001107

PATIENT
  Age: 44 Year
  Sex: Male

DRUGS (2)
  1. BYETTA [Suspect]
     Indication: DIABETES MELLITUS NON-INSULIN-DEPENDENT
     Dosage: 5 MCG;  BID; SC
     Route: 058
     Dates: start: 20050801, end: 20050815
  2. ERYTHROMYCIN [Suspect]
     Indication: GINGIVAL OPERATION
     Dosage: 250 MG; QID; PO
     Route: 048
     Dates: start: 20050815, end: 20050820

REACTIONS (7)
  - BLISTER [None]
  - DYSPNOEA [None]
  - EAR PAIN [None]
  - RASH [None]
  - RASH ERYTHEMATOUS [None]
  - RASH VESICULAR [None]
  - SHOULDER PAIN [None]
